FAERS Safety Report 6383725-0 (Version None)
Quarter: 2009Q3

REPORT INFORMATION
  Report Type: 
  Country: None (occurrence: None)
  Receive Date: 20090929
  Receipt Date: 20090929
  Transmission Date: 20100115
  Serious: Yes (Other)
  Sender: FDA-Public Use
  Company Number: None

PATIENT
  Age: 49 Year
  Sex: Male
  Weight: 82.5547 kg

DRUGS (2)
  1. CIALIS [Suspect]
     Dosage: 10MG PRN PO
     Route: 048
     Dates: start: 20090913, end: 20090915
  2. CIALIS [Suspect]
     Dosage: 10MG PRN PO
     Route: 048
     Dates: start: 20090926, end: 20090926

REACTIONS (4)
  - BACK PAIN [None]
  - CHEST PAIN [None]
  - EAR PAIN [None]
  - TINNITUS [None]
